FAERS Safety Report 9867563 (Version 1)
Quarter: 2014Q1

REPORT INFORMATION
  Report Type: Spontaneous
  Country: US (occurrence: None)
  Receive Date: 20140131
  Receipt Date: 20140131
  Transmission Date: 20141002
  Serious: Yes (Death)
  Sender: FDA-Public Use
  Company Number: FDB-2014-003

PATIENT
  Age: 74 Year
  Sex: Male

DRUGS (1)
  1. TECHNETIUM TC99M PYROPHOSPHATE [Suspect]
     Indication: HEPATOBILIARY SCAN
     Route: 042
     Dates: start: 20140115

REACTIONS (5)
  - Pain [None]
  - Jaundice [None]
  - Condition aggravated [None]
  - Abdominal distension [None]
  - Resuscitation [None]
